FAERS Safety Report 18065513 (Version 2)
Quarter: 2020Q3

REPORT INFORMATION
  Report Type: Spontaneous
  Country: GB (occurrence: GB)
  Receive Date: 20200724
  Receipt Date: 20200914
  Transmission Date: 20201103
  Serious: Yes (Other)
  Sender: FDA-Public Use
  Company Number: NVSC2020GB202757

PATIENT
  Age: 74 Year
  Sex: Female

DRUGS (4)
  1. DENOSUMAB [Concomitant]
     Active Substance: DENOSUMAB
     Indication: PRODUCT USED FOR UNKNOWN INDICATION
     Dosage: 1 DF PER 6 MONTH
     Route: 065
  2. ADALIMUMAB [Suspect]
     Active Substance: ADALIMUMAB
     Dosage: 40 MG, QW
     Route: 058
  3. COCODAMOL [Suspect]
     Active Substance: ACETAMINOPHEN\CODEINE PHOSPHATE
     Indication: PRODUCT USED FOR UNKNOWN INDICATION
     Dosage: UNK
     Route: 065
  4. ADALIMUMAB [Suspect]
     Active Substance: ADALIMUMAB
     Indication: PSORIASIS
     Dosage: 40 MG, Q2W
     Route: 058
     Dates: start: 20191017

REACTIONS (15)
  - Abdominal distension [Unknown]
  - Osteoarthritis [Unknown]
  - Osteoporosis [Unknown]
  - Vomiting [Unknown]
  - Arthritis [Unknown]
  - Weight increased [Unknown]
  - Tearfulness [Unknown]
  - Therapeutic product effect incomplete [Unknown]
  - Hypersomnia [Unknown]
  - Stress [Unknown]
  - Spinal fracture [Unknown]
  - Fatigue [Unknown]
  - Illness [Unknown]
  - Psoriasis [Unknown]
  - Somnolence [Unknown]
